FAERS Safety Report 17351344 (Version 1)
Quarter: 2020Q1

REPORT INFORMATION
  Report Type: Report from Study
  Country: CN (occurrence: CN)
  Receive Date: 20200130
  Receipt Date: 20200130
  Transmission Date: 20200409
  Serious: Yes (Other)
  Sender: FDA-Public Use
  Company Number: CN-GILEAD-2020-0448942

PATIENT
  Age: 50 Year
  Sex: Male

DRUGS (3)
  1. PEG INF [Concomitant]
     Active Substance: PEGINTERFERON ALFA-2A
  2. ADEFOVIR DIPIVOXIL. [Suspect]
     Active Substance: ADEFOVIR DIPIVOXIL
     Indication: CHRONIC HEPATITIS B
     Dosage: UNK
     Route: 065
  3. ENTECAVIR. [Concomitant]
     Active Substance: ENTECAVIR

REACTIONS (2)
  - Drug ineffective [Recovered/Resolved]
  - Hepatitis B reactivation [Recovered/Resolved]
